FAERS Safety Report 17803434 (Version 1)
Quarter: 2020Q2

REPORT INFORMATION
  Report Type: Report from Study
  Country: CO (occurrence: CO)
  Receive Date: 20200519
  Receipt Date: 20200519
  Transmission Date: 20200714
  Serious: Yes (Other)
  Sender: FDA-Public Use
  Company Number: CO-NOVOPROD-728487

PATIENT
  Age: 43 Year
  Sex: Female
  Weight: 57 kg

DRUGS (4)
  1. SAXENDA [Suspect]
     Active Substance: LIRAGLUTIDE
     Indication: PRODUCT USED FOR UNKNOWN INDICATION
     Dosage: 0.6 MG, QD
     Route: 058
     Dates: start: 20200504
  2. DICETEL DUO [Concomitant]
     Dosage: UNK
     Route: 048
  3. VALNOC [Concomitant]
     Dosage: 2 MG, QD
     Route: 048
  4. DISGRASIL [Concomitant]
     Dosage: 120 MG, TID
     Route: 048

REACTIONS (4)
  - Asthenia [Not Recovered/Not Resolved]
  - Syncope [Not Recovered/Not Resolved]
  - Dark circles under eyes [Not Recovered/Not Resolved]
  - Dizziness postural [Not Recovered/Not Resolved]

NARRATIVE: CASE EVENT DATE: 20200505
